FAERS Safety Report 8413452 (Version 2)
Quarter: 2013Q2

REPORT INFORMATION
  Report Type: Spontaneous
  Country: US (occurrence: None)
  Receive Date: 20111227
  Receipt Date: 20120426
  Transmission Date: 20140414
  Serious: No
  Sender: FDA-Public Use
  Company Number: PHEH2011US009852

PATIENT
  Age: 31 Year
  Sex: Female
  Weight: 77.1 kg

DRUGS (4)
  1. GILENYA [Suspect]
     Indication: MULTIPLE SCLEROSIS RELAPSE
     Dosage: 0.5 MG, QD, ORAL
     Route: 048
     Dates: start: 20111111
  2. GILENYA [Suspect]
     Indication: RELAPSING-REMITTING MULTIPLE SCLEROSIS
     Dosage: 0.5 MG, QD, ORAL
     Route: 048
     Dates: start: 20111111
  3. LEXAPRO (ESCITALOPRAM OXALATE) [Concomitant]
  4. OXYBUTYNIN (OXYBUTYNIN) [Concomitant]

REACTIONS (1)
  - DYSGEUSIA [None]
